FAERS Safety Report 9197393 (Version 3)
Quarter: 2013Q2

REPORT INFORMATION
  Report Type: Spontaneous
  Country: CA (occurrence: CA)
  Receive Date: 20130328
  Receipt Date: 20130506
  Transmission Date: 20140414
  Serious: Yes (Life-Threatening)
  Sender: FDA-Public Use
  Company Number: CA-GLAXOSMITHKLINE-A1017160A

PATIENT
  Age: 39 Year
  Sex: Male

DRUGS (4)
  1. FLOVENT [Suspect]
     Indication: ASTHMA
     Dosage: 2PUFF TWICE PER DAY
     Route: 055
     Dates: start: 20100814
  2. SALBUTAMOL [Concomitant]
     Indication: ASTHMA
     Dates: start: 200511
  3. DELATESTRYL [Concomitant]
     Indication: BLOOD TESTOSTERONE
     Dates: start: 200601
  4. ELTROXIN [Concomitant]
     Indication: HYPOTHYROIDISM
     Dosage: 1TAB PER DAY
     Dates: start: 201107

REACTIONS (2)
  - Choking [Recovered/Resolved]
  - Product quality issue [Unknown]
